FAERS Safety Report 14250100 (Version 3)
Quarter: 2018Q1

REPORT INFORMATION
  Report Type: Spontaneous
  Country: FR (occurrence: FR)
  Receive Date: 20171205
  Receipt Date: 20180201
  Transmission Date: 20180508
  Serious: Yes (Other)
  Sender: FDA-Public Use
  Company Number: FR-MERCK KGAA-2036618

PATIENT
  Age: 52 Year
  Sex: Female
  Weight: 59 kg

DRUGS (1)
  1. NOVOTHYROX [Suspect]
     Active Substance: LEVOTHYROXINE SODIUM
     Indication: AUTOIMMUNE THYROIDITIS
     Dates: start: 201704, end: 20171204

REACTIONS (14)
  - Hypertension [Not Recovered/Not Resolved]
  - Pyrexia [Not Recovered/Not Resolved]
  - Amnesia [Not Recovered/Not Resolved]
  - Blood bilirubin increased [Not Recovered/Not Resolved]
  - Alopecia [Not Recovered/Not Resolved]
  - Blood pressure increased [Not Recovered/Not Resolved]
  - Abdominal pain upper [Recovered/Resolved]
  - Weight increased [Not Recovered/Not Resolved]
  - Fatigue [Recovering/Resolving]
  - Vertigo [Not Recovered/Not Resolved]
  - Blood thyroid stimulating hormone increased [Recovering/Resolving]
  - Depression [Recovering/Resolving]
  - Tinnitus [Not Recovered/Not Resolved]
  - Blood thyroid stimulating hormone normal [Recovered/Resolved]

NARRATIVE: CASE EVENT DATE: 201704
